FAERS Safety Report 15345872 (Version 4)
Quarter: 2020Q4

REPORT INFORMATION
  Report Type: Spontaneous
  Country: DE (occurrence: DE)
  Receive Date: 20180904
  Receipt Date: 20201205
  Transmission Date: 20210113
  Serious: Yes (Other)
  Sender: FDA-Public Use
  Company Number: DE-ACCORD-071227

PATIENT
  Sex: Female
  Weight: 55 kg

DRUGS (5)
  1. ACETYLSALICYLIC ACID [Interacting]
     Active Substance: ASPIRIN
     Indication: PRODUCT USED FOR UNKNOWN INDICATION
     Dosage: 100 MG, UNK
     Route: 065
  2. VOLTAREN FORTE [Interacting]
     Active Substance: DICLOFENAC SODIUM
     Indication: BACK PAIN
     Dosage: UNK
     Route: 065
  3. LETROZOLE. [Suspect]
     Active Substance: LETROZOLE
     Indication: BREAST CANCER
     Dosage: 2.5 MG, UNK
     Route: 065
  4. VOLTAREN [Interacting]
     Active Substance: DICLOFENAC SODIUM
     Indication: BACK PAIN
     Dosage: 50 MG, BID
     Route: 048
  5. VOLTAREN [Interacting]
     Active Substance: DICLOFENAC SODIUM
     Indication: BACK PAIN
     Dosage: 50 MG, BID
     Route: 048

REACTIONS (5)
  - Drug ineffective [Unknown]
  - Drug interaction [Unknown]
  - Blood pressure systolic increased [Recovered/Resolved]
  - Restlessness [Recovered/Resolved]
  - Tachyarrhythmia [Recovered/Resolved]
